FAERS Safety Report 20947282 (Version 1)
Quarter: 2022Q2

REPORT INFORMATION
  Report Type: Spontaneous
  Country: US (occurrence: US)
  Receive Date: 20220610
  Receipt Date: 20220610
  Transmission Date: 20220720
  Serious: No
  Sender: FDA-Public Use
  Company Number: US-RIGEL PHARMACEUTICALS, INC.-2021FOS000602

PATIENT
  Sex: Female

DRUGS (1)
  1. TAVALISSE [Suspect]
     Active Substance: FOSTAMATINIB
     Indication: Hereditary haemolytic anaemia
     Dosage: 100 MG, BID
     Route: 048
     Dates: start: 20210623

REACTIONS (2)
  - Off label use [Unknown]
  - Eye laser surgery [Unknown]

NARRATIVE: CASE EVENT DATE: 20210101
